FAERS Safety Report 10204159 (Version 1)
Quarter: 2014Q2

REPORT INFORMATION
  Report Type: Spontaneous
  Country: US (occurrence: None)
  Receive Date: 20140527
  Receipt Date: 20140527
  Transmission Date: 20141212
  Serious: Yes (Death, Other)
  Sender: FDA-Public Use
  Company Number: SYM-2014-21048

PATIENT
  Age: 14 Year
  Sex: Female

DRUGS (1)
  1. XENAZINE [Suspect]
     Indication: TREMOR
     Route: 048
     Dates: start: 201311

REACTIONS (1)
  - Death [None]
